FAERS Safety Report 11993060 (Version 2)
Quarter: 2016Q1

REPORT INFORMATION
  Report Type: Report from Study
  Country: US (occurrence: US)
  Receive Date: 20160203
  Receipt Date: 20160216
  Transmission Date: 20160526
  Serious: Yes (Hospitalization)
  Sender: FDA-Public Use
  Company Number: US-ASTRAZENECA-2016SE09181

PATIENT
  Age: 688 Month
  Sex: Female
  Weight: 56.2 kg

DRUGS (5)
  1. HYDROCODONE [Concomitant]
     Active Substance: HYDROCODONE
     Indication: PAIN
     Dates: start: 2009
  2. ATIVAN [Concomitant]
     Active Substance: LORAZEPAM
     Indication: NEURALGIA
     Dates: start: 2009
  3. LOMOTOIL [Concomitant]
  4. ESTRADIOL. [Concomitant]
     Active Substance: ESTRADIOL
     Indication: HORMONE THERAPY
  5. SYMBICORT [Suspect]
     Active Substance: BUDESONIDE\FORMOTEROL FUMARATE DIHYDRATE
     Indication: ASTHMA
     Dosage: 160/4.5MCG, TWO PUFFS TWICE DAILY
     Route: 055
     Dates: start: 2000

REACTIONS (5)
  - Fistula [Unknown]
  - Infection [Unknown]
  - Asthma [Unknown]
  - Drug dose omission [Unknown]
  - Myocardial infarction [Unknown]

NARRATIVE: CASE EVENT DATE: 200902
